FAERS Safety Report 4514350-1 (Version None)
Quarter: 2004Q4

REPORT INFORMATION
  Report Type: 
  Country: None (occurrence: None)
  Receive Date: 20041124
  Receipt Date: 20041110
  Transmission Date: 20050328
  Serious: Yes (Death)
  Sender: FDA-Public Use
  Company Number: AU_041108163

PATIENT
  Age: 35 Year
  Sex: Female

DRUGS (7)
  1. ZYPREXA [Suspect]
     Dosage: 10 MG OTHER
     Route: 050
     Dates: end: 20040803
  2. ZYPREXA [Suspect]
     Dosage: 10 MG AS NEEDED
  3. LORAZEPAM [Concomitant]
  4. QUETIAPINE [Concomitant]
  5. LITHIUM CARBONATE [Concomitant]
  6. LORAZEPAM [Concomitant]
  7. ZOPICLONE (ZOPICLONE) [Concomitant]

REACTIONS (2)
  - CONDITION AGGRAVATED [None]
  - SLEEP APNOEA SYNDROME [None]
